FAERS Safety Report 6568388-3 (Version None)
Quarter: 2010Q1

REPORT INFORMATION
  Report Type: 
  Country: None (occurrence: None)
  Receive Date: 20100128
  Receipt Date: 20100115
  Transmission Date: 20100710
  Serious: Yes (Other)
  Sender: FDA-Public Use
  Company Number: 2010AL000352

PATIENT
  Age: 51 Year
  Sex: Female

DRUGS (4)
  1. CITALOPRAM HYDROBROMIDE [Suspect]
     Indication: DEPRESSION
     Dosage: 20 MG, PO
     Route: 048
     Dates: start: 20091224, end: 20091224
  2. RASAGILINE [Concomitant]
  3. ROTIGOTINE [Concomitant]
  4. LEVOTHYROXINE SODIUM [Concomitant]

REACTIONS (4)
  - CONFUSIONAL STATE [None]
  - DYSSTASIA [None]
  - NEUROTOXICITY [None]
  - VOMITING [None]
